FAERS Safety Report 10691585 (Version 1)
Quarter: 2015Q1

REPORT INFORMATION
  Report Type: Spontaneous
  Country: US (occurrence: US)
  Receive Date: 20150105
  Receipt Date: 20150105
  Transmission Date: 20150720
  Serious: No
  Sender: FDA-Public Use
  Company Number: US-PFIZER INC-2014362267

PATIENT
  Age: 70 Year
  Sex: Female
  Weight: 39 kg

DRUGS (17)
  1. DUONEB [Concomitant]
     Active Substance: ALBUTEROL SULFATE\IPRATROPIUM BROMIDE
     Dosage: IPRATROPIUM 2.6 MG - SALBUTAMOL 0.5 MG/3 ML 3TIMESDAILY
  2. MAG-OX [Concomitant]
     Dosage: 400 MG, DAILY
     Route: 048
  3. OS-CAL [Concomitant]
     Dosage: 500 MG, DAILY
     Route: 048
  4. PROLIA [Concomitant]
     Active Substance: DENOSUMAB
     Dosage: 60 MG, UNK
     Route: 058
  5. INLYTA [Suspect]
     Active Substance: AXITINIB
     Indication: RENAL CELL CARCINOMA
     Dosage: 5 MG, 2X/DAY(BID)
     Route: 048
  6. COREG [Concomitant]
     Active Substance: CARVEDILOL
     Dosage: 3.125 MG, 2X/DAY (WITH MEAL)
     Route: 048
  7. LIPITOR [Suspect]
     Active Substance: ATORVASTATIN CALCIUM
     Dosage: 10 MG, DAILY
     Route: 048
  8. FOLVITE [Concomitant]
     Active Substance: FOLIC ACID
     Dosage: 1 MG, DAILY
     Route: 048
  9. CLARITIN [Concomitant]
     Active Substance: LORATADINE
     Dosage: 10 MG, DAILY
     Route: 048
  10. NORVASC [Concomitant]
     Active Substance: AMLODIPINE BESYLATE
     Dosage: 2.5 MG, DAILY
     Route: 048
  11. SYNTHROID [Concomitant]
     Active Substance: LEVOTHYROXINE SODIUM
     Dosage: 25 ?G, DAILY (BEFORE BREAKFAST)
     Route: 048
  12. TORISEL [Concomitant]
     Active Substance: TEMSIROLIMUS
     Dosage: UNK
     Route: 042
  13. COZAAR [Concomitant]
     Active Substance: LOSARTAN POTASSIUM
     Dosage: 25 MG, DAILY
     Route: 048
  14. DIFLUCAN [Suspect]
     Active Substance: FLUCONAZOLE
     Dosage: 100 MG, DAILY
     Route: 048
  15. GLUCOTROL [Suspect]
     Active Substance: GLIPIZIDE
     Dosage: 2.5 MG, 1X/DAY
     Route: 048
  16. VITAMIN D3 [Concomitant]
     Active Substance: CHOLECALCIFEROL
     Dosage: 1000 IU, DAILY
     Route: 048
  17. PRILOSEC [Concomitant]
     Active Substance: OMEPRAZOLE MAGNESIUM
     Dosage: 20 MG, 2X/DAY
     Route: 048

REACTIONS (6)
  - Blood glucose increased [Unknown]
  - Lymphocyte count decreased [Unknown]
  - Blood calcium decreased [Unknown]
  - Mean platelet volume decreased [Unknown]
  - Granulocyte count increased [Unknown]
  - Haemoglobin decreased [Unknown]
